FAERS Safety Report 22110844 (Version 1)
Quarter: 2023Q1

REPORT INFORMATION
  Report Type: Spontaneous
  Country: US (occurrence: None)
  Receive Date: 20230317
  Receipt Date: 20230317
  Transmission Date: 20230418
  Serious: No
  Sender: FDA-Public Use
  Company Number: None

PATIENT
  Age: 59 Year
  Sex: Female
  Weight: 77.11 kg

DRUGS (11)
  1. FIRDAPSE [Suspect]
     Active Substance: AMIFAMPRIDINE PHOSPHATE
     Indication: Myasthenic syndrome
     Dosage: FREQUENCY : EVERY 4 HOURS;?
     Route: 048
     Dates: start: 20220101
  2. Glycopyrolate (Generic for Rubinol) [Concomitant]
  3. Pyridostigmine (Generic for Mestinon) [Concomitant]
  4. PYRIDOSTIGMINE [Concomitant]
     Active Substance: PYRIDOSTIGMINE
  5. Chloroxazone (Generic for Parafon) [Concomitant]
  6. MYCOPHENOLIC ACID [Concomitant]
     Active Substance: MYCOPHENOLIC ACID
  7. MINERALS\VITAMINS [Concomitant]
     Active Substance: MINERALS\VITAMINS
  8. VITAMIN D3 [Concomitant]
     Active Substance: CHOLECALCIFEROL
  9. CALCIUM [Concomitant]
     Active Substance: CALCIUM
  10. Zyrtech [Concomitant]
  11. Anti Diahhearal [Concomitant]

REACTIONS (9)
  - Pain in extremity [None]
  - Dizziness [None]
  - Arthralgia [None]
  - Headache [None]
  - Feeling abnormal [None]
  - Dysarthria [None]
  - Incontinence [None]
  - Pharyngeal paraesthesia [None]
  - Therapy interrupted [None]

NARRATIVE: CASE EVENT DATE: 20230301
